FAERS Safety Report 7398841-4 (Version None)
Quarter: 2011Q2

REPORT INFORMATION
  Report Type: 
  Country: None (occurrence: None)
  Receive Date: 20110404
  Receipt Date: 20110404
  Transmission Date: 20111010
  Serious: Yes (Death)
  Sender: FDA-Public Use
  Company Number: None

PATIENT
  Age: 88 Year
  Sex: Female

DRUGS (2)
  1. QUELICIN [Suspect]
     Indication: ENDOTRACHEAL INTUBATION
     Dosage: X1 IV
     Route: 042
     Dates: start: 20110401
  2. AMIDATE [Suspect]
     Indication: ENDOTRACHEAL INTUBATION
     Dosage: X1 IV
     Route: 042
     Dates: start: 20110401

REACTIONS (1)
  - ANAPHYLACTIC REACTION [None]
